FAERS Safety Report 13121158 (Version 2)
Quarter: 2017Q1

REPORT INFORMATION
  Report Type: Spontaneous
  Country: JP (occurrence: JP)
  Receive Date: 20170117
  Receipt Date: 20170320
  Transmission Date: 20170428
  Serious: Yes (Life-Threatening, Hospitalization)
  Sender: FDA-Public Use
  Company Number: JP-NOVOPROD-526260

PATIENT
  Age: 82 Year
  Sex: Female
  Weight: 42 kg

DRUGS (4)
  1. MICOMBI COMBINATION [Concomitant]
     Active Substance: HYDROCHLOROTHIAZIDE\TELMISARTAN
     Dosage: 1 TAB
     Route: 048
  2. RYZODEG 70/30 [Suspect]
     Active Substance: INSULIN ASPART\INSULIN DEGLUDEC
     Indication: TYPE 1 DIABETES MELLITUS
     Dosage: 32 U, QD (24-0-8)
     Route: 058
     Dates: start: 20161228, end: 20170104
  3. NORVASC [Concomitant]
     Active Substance: AMLODIPINE BESYLATE
     Dosage: 5 MG
     Route: 048
  4. MYSLEE [Concomitant]
     Active Substance: ZOLPIDEM TARTRATE
     Dosage: 10 MG
     Route: 048

REACTIONS (2)
  - Hypoglycaemic unconsciousness [Recovered/Resolved]
  - Hypoglycaemic encephalopathy [Unknown]

NARRATIVE: CASE EVENT DATE: 20170103
